FAERS Safety Report 24780666 (Version 2)
Quarter: 2025Q2

REPORT INFORMATION
  Report Type: Report from Study
  Country: AU (occurrence: AU)
  Receive Date: 20241227
  Receipt Date: 20250403
  Transmission Date: 20250717
  Serious: Yes (Other)
  Sender: CSL BEHRING
  Company Number: AU-BEH-2024187172

PATIENT
  Age: 25 Year
  Sex: Female
  Weight: 62 kg

DRUGS (11)
  1. HIZENTRA [Suspect]
     Active Substance: HUMAN IMMUNOGLOBULIN G
     Indication: Chronic inflammatory demyelinating polyradiculoneuropathy
     Dosage: 6 G, QW (PRODUCT STRENGTH 20%)
     Route: 058
  2. HIZENTRA [Suspect]
     Active Substance: HUMAN IMMUNOGLOBULIN G
     Dosage: 6 G, QW (PRODUCT STRENGTH 20%)
     Route: 058
  3. HIZENTRA [Suspect]
     Active Substance: HUMAN IMMUNOGLOBULIN G
     Dosage: 2 G, QW
     Route: 065
  4. HIZENTRA [Suspect]
     Active Substance: HUMAN IMMUNOGLOBULIN G
     Dosage: 6 G, QW
     Route: 065
  5. CROMOLYN SODIUM [Concomitant]
     Active Substance: CROMOLYN SODIUM
  6. MIDODRINE [Concomitant]
     Active Substance: MIDODRINE
  7. ZYRTEC [Concomitant]
     Active Substance: CETIRIZINE HYDROCHLORIDE
  8. FLUDROCORTISONE [Concomitant]
     Active Substance: FLUDROCORTISONE
  9. VITAMIN C [Concomitant]
     Active Substance: ASCORBIC ACID
  10. VITAMIN D NOS [Concomitant]
     Active Substance: CHOLECALCIFEROL\ERGOCALCIFEROL
  11. METFORMIN [Concomitant]
     Active Substance: METFORMIN HYDROCHLORIDE

REACTIONS (20)
  - Palpitations [Unknown]
  - Photosensitivity reaction [Unknown]
  - Fatigue [Unknown]
  - Headache [Unknown]
  - Infusion site erythema [Unknown]
  - Infusion site swelling [Unknown]
  - Somnolence [Unknown]
  - Photosensitivity reaction [Unknown]
  - Hyperacusis [Unknown]
  - Headache [Unknown]
  - Pain [Unknown]
  - Nausea [Unknown]
  - Fatigue [Unknown]
  - Asthenia [Unknown]
  - Bone pain [Unknown]
  - Pain [Unknown]
  - Brain fog [Unknown]
  - Product quality issue [Unknown]
  - Hypersomnia [Unknown]
  - Poor quality product administered [Unknown]

NARRATIVE: CASE EVENT DATE: 20241203
